FAERS Safety Report 20628807 (Version 4)
Quarter: 2022Q2

REPORT INFORMATION
  Report Type: Spontaneous
  Country: JP (occurrence: JP)
  Receive Date: 20220323
  Receipt Date: 20220406
  Transmission Date: 20220721
  Serious: Yes (Hospitalization)
  Sender: FDA-Public Use
  Company Number: JP-DSJP-DSJ-2022-109448

PATIENT
  Age: 88 Year
  Sex: Female
  Weight: 42 kg

DRUGS (14)
  1. PRAVASTATIN SODIUM [Suspect]
     Active Substance: PRAVASTATIN SODIUM
     Indication: Dyslipidaemia
     Dosage: 5 MG, QD, AFTER BREAKFAST
     Route: 048
  2. OLMESARTAN [Suspect]
     Active Substance: OLMESARTAN
     Dosage: 20 MG, QD, AFTER BREAKFAST
     Route: 048
  3. RIFADIN [Suspect]
     Active Substance: RIFAMPIN
     Indication: Atypical mycobacterial infection
     Dosage: 450 MG, QD, AFTER BREAKFAST
     Route: 048
  4. AMLODIPINE BESYLATE [Suspect]
     Active Substance: AMLODIPINE BESYLATE
     Dosage: 5 MG, QD, AFTER BREAKFAST
     Route: 048
  5. ALLOPURINOL [Concomitant]
     Active Substance: ALLOPURINOL
     Indication: Hyperuricaemia
     Dosage: 100 MG, QD, AFTER BREAKFAST
     Route: 048
  6. NICERGOLINE [Concomitant]
     Active Substance: NICERGOLINE
     Dosage: 5 MG, TID, AFTER BREAKFAST, AFTER LUNCH AND AFTER DINNER
     Route: 048
  7. ACETAMINOPHEN [Concomitant]
     Active Substance: ACETAMINOPHEN
     Dosage: 600 MG, QID, AFTER BREAKFAST, AFTER LUNCH, AFTER DINNER AND BEFORE BEDTIME
     Route: 048
  8. FENTANYL CITRATE [Concomitant]
     Active Substance: FENTANYL CITRATE
     Indication: Cancer pain
     Dosage: 0.5 MG, QD
  9. FENTANYL CITRATE [Concomitant]
     Active Substance: FENTANYL CITRATE
     Dosage: 1.0 MG, QD
  10. FENTANYL CITRATE [Concomitant]
     Active Substance: FENTANYL CITRATE
     Dosage: 100 UG, AS NEEDED (AT PAIN)
     Route: 048
  11. LUBIPROSTONE [Concomitant]
     Active Substance: LUBIPROSTONE
     Indication: Constipation prophylaxis
     Dosage: 24 UG, QD, AFTER BREAKFAST
     Route: 048
  12. SENNOSIDES A AND B [Concomitant]
     Active Substance: SENNOSIDES A AND B
     Dosage: 12 MG, BID, BEFORE BEDTIME
     Route: 048
  13. ETHAMBUTOL HYDROCHLORIDE [Concomitant]
     Active Substance: ETHAMBUTOL HYDROCHLORIDE
     Indication: Atypical mycobacterial infection
     Dosage: 750 MG, QD, AFTER BREAKFAST
     Route: 048
  14. CLARITHROMYCIN [Concomitant]
     Active Substance: CLARITHROMYCIN
     Indication: Atypical mycobacterial infection
     Dosage: 400 MG, BID, AFTER BREAKFAST AND AFTER DINNER
     Route: 048

REACTIONS (1)
  - Loss of consciousness [Recovered/Resolved]
